FAERS Safety Report 13013655 (Version 1)
Quarter: 2016Q4

REPORT INFORMATION
  Report Type: Other
  Country: IT (occurrence: IT)
  Receive Date: 20161209
  Receipt Date: 20161209
  Transmission Date: 20170207
  Serious: Yes (Other)
  Sender: FDA-Public Use
  Company Number: IT-CELLTRION INC.-2016IT013040

PATIENT

DRUGS (3)
  1. DIBASE [Concomitant]
     Active Substance: CHOLECALCIFEROL
  2. INFLECTRA [Suspect]
     Active Substance: INFLIXIMAB-DYYB
     Dosage: 400 MG, UNK
     Route: 042
     Dates: start: 20161121, end: 20161121
  3. INFLECTRA [Suspect]
     Active Substance: INFLIXIMAB-DYYB
     Indication: COLITIS
     Dosage: 400 MG, UNK
     Route: 042
     Dates: start: 20160408, end: 20160408

REACTIONS (3)
  - Psoriatic arthropathy [Recovered/Resolved]
  - Condition aggravated [Recovered/Resolved]
  - Psoriasis [Recovered/Resolved]

NARRATIVE: CASE EVENT DATE: 20160801
